FAERS Safety Report 18610018 (Version 1)
Quarter: 2020Q4

REPORT INFORMATION
  Report Type: Spontaneous
  Country: US (occurrence: US)
  Receive Date: 20201214
  Receipt Date: 20201214
  Transmission Date: 20210114
  Serious: No
  Sender: FDA-Public Use
  Company Number: US-BAYER-2020-274626

PATIENT
  Age: 68 Year
  Sex: Male

DRUGS (1)
  1. GADAVIST [Suspect]
     Active Substance: GADOBUTROL
     Indication: MAGNETIC RESONANCE IMAGING SPINAL
     Dosage: 11.5 ML, ONCE
     Route: 042
     Dates: start: 20200610, end: 20200610

REACTIONS (1)
  - Vomiting [Recovered/Resolved]
